FAERS Safety Report 5409916-0 (Version None)
Quarter: 2007Q3

REPORT INFORMATION
  Report Type: 
  Country: None (occurrence: None)
  Receive Date: 20070807
  Receipt Date: 20070731
  Transmission Date: 20080115
  Serious: Yes (Life-Threatening)
  Sender: FDA-Public Use
  Company Number: 2007-162166-NL

PATIENT
  Age: 25 Year
  Sex: Female

DRUGS (1)
  1. ETONOGESTREL [Suspect]
     Dosage: DF
     Dates: start: 20050405, end: 20050901

REACTIONS (5)
  - DEPRESSION [None]
  - HAEMORRHAGE [None]
  - LETHARGY [None]
  - MUSCULAR WEAKNESS [None]
  - SLEEP DISORDER [None]
